FAERS Safety Report 16440594 (Version 1)
Quarter: 2019Q3

REPORT INFORMATION
  Report Type: Spontaneous
  Country: KN (occurrence: KN)
  Receive Date: 20190617
  Receipt Date: 20190617
  Transmission Date: 20191004
  Serious: No
  Sender: FDA-Public Use
  Company Number: None

PATIENT
  Age: 30 Year
  Sex: Female
  Weight: 96.75 kg

DRUGS (2)
  1. DEPO-PROVERA [Suspect]
     Active Substance: MEDROXYPROGESTERONE ACETATE
     Indication: CONTRACEPTION
     Dates: start: 20190207, end: 20190502
  2. SEVEN SEAS MULTI VITAMIN [Concomitant]

REACTIONS (6)
  - Depressed mood [None]
  - Metrorrhagia [None]
  - Weight increased [None]
  - Loss of libido [None]
  - Mood altered [None]
  - Suicidal ideation [None]

NARRATIVE: CASE EVENT DATE: 20190207
